FAERS Safety Report 20776974 (Version 5)
Quarter: 2022Q4

REPORT INFORMATION
  Report Type: Other
  Country: CA (occurrence: None)
  Receive Date: 20220502
  Receipt Date: 20221229
  Transmission Date: 20230113
  Serious: No
  Sender: FDA-Public Use
  Company Number: CA-ROCHE-2631829

PATIENT
  Sex: Female

DRUGS (5)
  1. OCREVUS [Suspect]
     Active Substance: OCRELIZUMAB
     Indication: Relapsing-remitting multiple sclerosis
     Dosage: 300 MG AT DAY 0 AND 14, THEN 600 MG EVERY 6 MONTH
     Route: 042
     Dates: start: 20180530
  2. CITALOPRAM [Concomitant]
     Active Substance: CITALOPRAM HYDROBROMIDE
     Indication: Anxiety
  3. BACLOFEN [Concomitant]
     Active Substance: BACLOFEN
  4. GABAPENTIN [Concomitant]
     Active Substance: GABAPENTIN
  5. DALFAMPRIDINE [Concomitant]
     Active Substance: DALFAMPRIDINE

REACTIONS (7)
  - Fatigue [Not Recovered/Not Resolved]
  - Pain in extremity [Recovered/Resolved]
  - Gait disturbance [Not Recovered/Not Resolved]
  - COVID-19 [Not Recovered/Not Resolved]
  - Drug ineffective [Unknown]
  - Restless legs syndrome [Not Recovered/Not Resolved]
  - Muscle twitching [Not Recovered/Not Resolved]
